FAERS Safety Report 4870197-8 (Version None)
Quarter: 2005Q4

REPORT INFORMATION
  Report Type: 
  Country: None (occurrence: None)
  Receive Date: 20051228
  Receipt Date: 20051216
  Transmission Date: 20060501
  Serious: Yes (Other)
  Sender: FDA-Public Use
  Company Number: KII-2005-0020346

PATIENT
  Age: 28 Year
  Sex: Female

DRUGS (3)
  1. OXYCODONE HCL [Suspect]
     Indication: SPINAL OPERATION
     Dosage: ORAL
     Route: 048
  2. CARISOPRODOL [Suspect]
     Indication: SPINAL OPERATION
     Dosage: ORAL
     Route: 048
  3. ACETAMINOPHEN AND HYDROCODONE BITARTRATE [Suspect]
     Indication: SPINAL OPERATION

REACTIONS (8)
  - BLOOD PH ABNORMAL [None]
  - COMA [None]
  - DYSARTHRIA [None]
  - LETHARGY [None]
  - PCO2 ABNORMAL [None]
  - RESPIRATORY RATE DECREASED [None]
  - SINUS TACHYCARDIA [None]
  - TREMOR [None]
